FAERS Safety Report 6886471-X (Version None)
Quarter: 2010Q3

REPORT INFORMATION
  Report Type: 
  Country: None (occurrence: None)
  Receive Date: 20100729
  Receipt Date: 20090610
  Transmission Date: 20110219
  Serious: No
  Sender: FDA-Public Use
  Company Number: US-PFIZER INC-2009175266

PATIENT
  Sex: Male

DRUGS (1)
  1. ACCUPRIL [Suspect]
     Dosage: UNK
     Dates: start: 20010201, end: 20090101

REACTIONS (2)
  - BLOOD POTASSIUM INCREASED [None]
  - URINE OUTPUT INCREASED [None]
